FAERS Safety Report 22600604 (Version 1)
Quarter: 2023Q2

REPORT INFORMATION
  Report Type: Report from Study
  Country: IL (occurrence: IL)
  Receive Date: 20230614
  Receipt Date: 20230614
  Transmission Date: 20230721
  Serious: Yes (Other)
  Sender: FDA-Public Use
  Company Number: IL-GLAXOSMITHKLINE-IL2023EME079585

PATIENT

DRUGS (1)
  1. MEPOLIZUMAB [Suspect]
     Active Substance: MEPOLIZUMAB
     Indication: Product used for unknown indication
     Dosage: UNK

REACTIONS (9)
  - Dermatitis exfoliative generalised [Unknown]
  - Rash [Unknown]
  - Pruritus [Unknown]
  - Spinal pain [Unknown]
  - Pelvic pain [Unknown]
  - Arthralgia [Unknown]
  - Pain in extremity [Unknown]
  - Weight decreased [Unknown]
  - Dermatitis atopic [Unknown]
